FAERS Safety Report 14871769 (Version 1)
Quarter: 2018Q2

REPORT INFORMATION
  Report Type: Spontaneous
  Country: CA (occurrence: CA)
  Receive Date: 20180509
  Receipt Date: 20180509
  Transmission Date: 20180711
  Serious: Yes (Other)
  Sender: FDA-Public Use
  Company Number: CA-MYLANLABS-2018M1029984

PATIENT
  Age: 74 Year
  Sex: Female
  Weight: 102 kg

DRUGS (3)
  1. METFORMIN [Concomitant]
     Active Substance: METFORMIN HYDROCHLORIDE
     Indication: PRODUCT USED FOR UNKNOWN INDICATION
  2. MAVIK [Suspect]
     Active Substance: TRANDOLAPRIL
     Indication: BLOOD PRESSURE INCREASED
     Dosage: 1
     Route: 048
     Dates: start: 20161004
  3. JANUVIA [Concomitant]
     Active Substance: SITAGLIPTIN PHOSPHATE
     Indication: PRODUCT USED FOR UNKNOWN INDICATION
     Dosage: 1 DF, UNK

REACTIONS (4)
  - Choking [Recovering/Resolving]
  - Cough [Not Recovered/Not Resolved]
  - Productive cough [Recovering/Resolving]
  - Dry throat [Unknown]

NARRATIVE: CASE EVENT DATE: 201706
